FAERS Safety Report 25189866 (Version 2)
Quarter: 2025Q2

REPORT INFORMATION
  Report Type: Spontaneous
  Country: US (occurrence: US)
  Receive Date: 20250411
  Receipt Date: 20250415
  Transmission Date: 20250716
  Serious: No
  Sender: ABBVIE
  Company Number: US-ABBVIE-6215105

PATIENT
  Sex: Female

DRUGS (1)
  1. BYSTOLIC [Suspect]
     Active Substance: NEBIVOLOL HYDROCHLORIDE
     Indication: Ventricular extrasystoles
     Route: 048

REACTIONS (4)
  - Paraesthesia [Unknown]
  - Product quality issue [Unknown]
  - Burning sensation [Unknown]
  - Off label use [Unknown]
